FAERS Safety Report 6341761-4 (Version None)
Quarter: 2009Q3

REPORT INFORMATION
  Report Type: 
  Country: None (occurrence: None)
  Receive Date: 20090904
  Receipt Date: 20090828
  Transmission Date: 20100115
  Serious: Yes (Other)
  Sender: FDA-Public Use
  Company Number: PHHY2009GB34450

PATIENT
  Sex: Male

DRUGS (3)
  1. TASIGNA [Suspect]
     Indication: CHRONIC MYELOID LEUKAEMIA
  2. GEMCITABINE [Concomitant]
  3. CARBOPLATIN [Concomitant]

REACTIONS (3)
  - CONCOMITANT DISEASE PROGRESSION [None]
  - LUNG NEOPLASM MALIGNANT [None]
  - NEOPLASM MALIGNANT [None]
